FAERS Safety Report 16526887 (Version 2)
Quarter: 2019Q3

REPORT INFORMATION
  Report Type: Spontaneous
  Country: JP (occurrence: JP)
  Receive Date: 20190703
  Receipt Date: 20190731
  Transmission Date: 20191004
  Serious: Yes (Hospitalization)
  Sender: FDA-Public Use
  Company Number: JP-JNJFOC-20190630308

PATIENT
  Age: 71 Year
  Sex: Female

DRUGS (2)
  1. RIVAROXABAN [Suspect]
     Active Substance: RIVAROXABAN
     Indication: EMBOLISM VENOUS
     Dosage: 15 MG, BID
     Route: 048
  2. RIVAROXABAN [Suspect]
     Active Substance: RIVAROXABAN
     Indication: THROMBOSIS PROPHYLAXIS

REACTIONS (1)
  - Pulmonary artery aneurysm [Recovering/Resolving]
